FAERS Safety Report 24796113 (Version 2)
Quarter: 2025Q1

REPORT INFORMATION
  Report Type: Spontaneous
  Country: JP (occurrence: JP)
  Receive Date: 20250101
  Receipt Date: 20250208
  Transmission Date: 20250408
  Serious: Yes (Other)
  Sender: ROCHE
  Company Number: JP-CHUGAI-2024045361

PATIENT
  Age: 5 Decade
  Sex: Female

DRUGS (3)
  1. PIASKY [Suspect]
     Active Substance: CROVALIMAB-AKKZ
     Indication: Paroxysmal nocturnal haemoglobinuria
     Route: 058
     Dates: start: 20241003
  2. DAYVIGO [Suspect]
     Active Substance: LEMBOREXANT
     Indication: Product used for unknown indication
     Route: 065
  3. ZOLPIDEM TARTRATE [Concomitant]
     Active Substance: ZOLPIDEM TARTRATE

REACTIONS (2)
  - Suspected drug-induced liver injury [Unknown]
  - Liver function test abnormal [Recovering/Resolving]

NARRATIVE: CASE EVENT DATE: 20241226
